FAERS Safety Report 24731703 (Version 1)
Quarter: 2024Q4

REPORT INFORMATION
  Report Type: Spontaneous
  Country: RO (occurrence: RO)
  Receive Date: 20241213
  Receipt Date: 20241213
  Transmission Date: 20250115
  Serious: Yes (Other)
  Sender: FRESENIUS KABI
  Company Number: RO-BRISTOL-MYERS SQUIBB COMPANY-2024-187238

PATIENT
  Age: 61 Year
  Sex: Male

DRUGS (4)
  1. OXALIPLATIN [Suspect]
     Active Substance: OXALIPLATIN
     Indication: Adenocarcinoma gastric
     Dosage: FORM OF ADMIN: UNKNOWN?FOLFOX 6
     Route: 065
     Dates: start: 202405, end: 202409
  2. LEUCOVORIN [Suspect]
     Active Substance: LEUCOVORIN\LEUCOVORIN CALCIUM
     Indication: Adenocarcinoma gastric
     Dosage: FORM OF ADMIN: UNKNOWN?FOLFOX 6
     Route: 065
     Dates: start: 202405, end: 202409
  3. NIVOLUMAB [Suspect]
     Active Substance: NIVOLUMAB
     Indication: Adenocarcinoma gastric
     Route: 065
     Dates: start: 202405, end: 202409
  4. FLUOROURACIL [Suspect]
     Active Substance: FLUOROURACIL
     Indication: Adenocarcinoma gastric
     Dosage: FORM OF ADMIN:  UNKNOWN?FOLFOX 6
     Route: 065
     Dates: start: 202405, end: 202409

REACTIONS (1)
  - Peripheral motor neuropathy [Unknown]

NARRATIVE: CASE EVENT DATE: 20240901
